FAERS Safety Report 8574555-X (Version None)
Quarter: 2012Q3

REPORT INFORMATION
  Report Type: 
  Country: None (occurrence: None)
  Receive Date: 20120806
  Receipt Date: 20120627
  Transmission Date: 20120928
  Serious: Yes (Hospitalization)
  Sender: FDA-Public Use
  Company Number: CHPA2012US001544

PATIENT
  Age: 69 Year
  Sex: Female

DRUGS (2)
  1. EXCEDRIN (MIGRAINE) [Suspect]
     Dosage: UNK , UNK
     Route: 048
  2. EXCEDRIN (MIGRAINE) [Suspect]
     Dosage: 2 UNK, TID
     Route: 048

REACTIONS (1)
  - PARTIAL SEIZURES [None]
